FAERS Safety Report 9342402 (Version 1)
Quarter: 2013Q2

REPORT INFORMATION
  Report Type: Spontaneous
  Country: GB (occurrence: None)
  Receive Date: 20130607
  Receipt Date: 20130607
  Transmission Date: 20140414
  Serious: Yes (Congenital Anomaly, Other)
  Sender: FDA-Public Use
  Company Number: 2013GB0220

PATIENT
  Sex: Male

DRUGS (1)
  1. ANAKINRA [Suspect]
     Dosage: 25 MG (50 MG, 1 IN 2 D) TRANSPLACENTAL
     Route: 064

REACTIONS (2)
  - Cryopyrin associated periodic syndrome [None]
  - Foetal exposure during pregnancy [None]
